FAERS Safety Report 20827888 (Version 1)
Quarter: 2022Q2

REPORT INFORMATION
  Report Type: Spontaneous
  Country: US (occurrence: US)
  Receive Date: 20220513
  Receipt Date: 20220513
  Transmission Date: 20220721
  Serious: No
  Sender: FDA-Public Use
  Company Number: US-PFIZER INC-202101198600

PATIENT
  Age: 68 Year

DRUGS (4)
  1. MORPHINE SULFATE [Suspect]
     Active Substance: MORPHINE SULFATE
     Dosage: UNK
  2. DICLOFENAC SODIUM [Suspect]
     Active Substance: DICLOFENAC SODIUM
  3. PHENOBARBITAL [Suspect]
     Active Substance: PHENOBARBITAL
     Dosage: UNK
  4. FLECAINIDE [Suspect]
     Active Substance: FLECAINIDE
     Dosage: UNK

REACTIONS (1)
  - Drug hypersensitivity [Unknown]
